FAERS Safety Report 6151924-9 (Version None)
Quarter: 2009Q2

REPORT INFORMATION
  Report Type: 
  Country: None (occurrence: None)
  Receive Date: 20090410
  Receipt Date: 20090403
  Transmission Date: 20091009
  Serious: Yes (Life-Threatening, Hospitalization)
  Sender: FDA-Public Use
  Company Number: GH-MERCK-0904USA00917

PATIENT
  Age: 17 Year
  Sex: Male

DRUGS (2)
  1. STROMECTOL [Suspect]
     Route: 048
     Dates: start: 20080909
  2. ALBENDAZOLE [Suspect]
     Route: 048
     Dates: start: 20080909

REACTIONS (5)
  - BLOOD PRESSURE [None]
  - GENERALISED OEDEMA [None]
  - PALPITATIONS [None]
  - PITTING OEDEMA [None]
  - RENAL FAILURE ACUTE [None]
